FAERS Safety Report 10357840 (Version 1)
Quarter: 2014Q3

REPORT INFORMATION
  Report Type: Spontaneous
  Country: SE (occurrence: SE)
  Receive Date: 20140801
  Receipt Date: 20140801
  Transmission Date: 20150326
  Serious: Yes (Other)
  Sender: FDA-Public Use
  Company Number: SE-TEVA-497446ISR

PATIENT
  Age: 8 Year
  Sex: Male

DRUGS (5)
  1. LIVOSTIN 0,5 MG/ML EYE DROP SUSPENSION [Concomitant]
     Dosage: V B
  2. SERTRALINE [Suspect]
     Active Substance: SERTRALINE HYDROCHLORIDE
     Route: 048
     Dates: start: 20140228, end: 20140528
  3. AERIUS 2,5 MG MOUTH DISSOLVING TABLET [Concomitant]
     Dosage: V B
  4. SERTRALINE [Suspect]
     Active Substance: SERTRALINE HYDROCHLORIDE
     Indication: OBSESSIVE-COMPULSIVE DISORDER
     Route: 048
     Dates: start: 20130903, end: 20131004
  5. MINIDERM 20 % CREME [Concomitant]
     Active Substance: GLYCERIN
     Dosage: V B

REACTIONS (2)
  - Oropharyngeal pain [Recovered/Resolved]
  - Product substitution issue [Recovered/Resolved]

NARRATIVE: CASE EVENT DATE: 20131004
